FAERS Safety Report 8840974 (Version 2)
Quarter: 2012Q4

REPORT INFORMATION
  Report Type: 
  Country: US (occurrence: US)
  Receive Date: 20121015
  Receipt Date: 20121022
  Transmission Date: 20130627
  Serious: Yes (Death)
  Sender: FDA-Public Use
  Company Number: US-ROCHE-1130099

PATIENT
  Sex: Male

DRUGS (2)
  1. TNKASE [Suspect]
     Indication: ACUTE MYOCARDIAL INFARCTION
     Route: 042
     Dates: start: 20110316, end: 20110316
  2. TNKASE [Suspect]
     Indication: DYSPNOEA

REACTIONS (3)
  - Cardio-respiratory arrest [Fatal]
  - Arrhythmia [Fatal]
  - Ventricle rupture [Fatal]
